FAERS Safety Report 7788690-7 (Version None)
Quarter: 2011Q3

REPORT INFORMATION
  Report Type: 
  Country: None (occurrence: None)
  Receive Date: 20110930
  Receipt Date: 20110107
  Transmission Date: 20111222
  Serious: No
  Sender: FDA-Public Use
  Company Number: US-VIIV HEALTHCARE LIMITED-A0904114A

PATIENT
  Age: 32 Year
  Sex: Female

DRUGS (3)
  1. RITONAVIR [Concomitant]
  2. UNKNOWN MEDICATION [Concomitant]
  3. EPZICOM [Suspect]
     Indication: HIV INFECTION
     Dosage: 600300MG PER DAY
     Route: 048
     Dates: start: 20101214, end: 20101230

REACTIONS (7)
  - PRODUCTIVE COUGH [None]
  - SPUTUM PURULENT [None]
  - OROPHARYNGEAL PAIN [None]
  - HEADACHE [None]
  - LYMPH NODE PAIN [None]
  - SINUS CONGESTION [None]
  - EAR PAIN [None]
